FAERS Safety Report 4565824-9 (Version None)
Quarter: 2005Q1

REPORT INFORMATION
  Report Type: 
  Country: None (occurrence: None)
  Receive Date: 20050128
  Receipt Date: 20050117
  Transmission Date: 20050727
  Serious: Yes (Death)
  Sender: FDA-Public Use
  Company Number: 2005EU000103

PATIENT
  Age: 52 Year
  Sex: Female

DRUGS (2)
  1. PROGRAF [Suspect]
     Indication: LIVER TRANSPLANT
  2. PREDNISONE [Concomitant]

REACTIONS (2)
  - COMPLICATIONS OF TRANSPLANTED LIVER [None]
  - LYMPHOMA [None]
